FAERS Safety Report 17544994 (Version 2)
Quarter: 2020Q2

REPORT INFORMATION
  Report Type: Spontaneous
  Country: DE (occurrence: DE)
  Receive Date: 20200316
  Receipt Date: 20200602
  Transmission Date: 20200713
  Serious: Yes (Other)
  Sender: FDA-Public Use
  Company Number: DE-SA-2020SA064244

PATIENT

DRUGS (2)
  1. ALPROLIX [Suspect]
     Active Substance: EFTRENONACOG ALFA
     Indication: FACTOR IX DEFICIENCY
     Dosage: 4000 IU, QW
     Route: 042
     Dates: start: 20200225
  2. ALPROLIX [Suspect]
     Active Substance: EFTRENONACOG ALFA
     Indication: FACTOR IX DEFICIENCY
     Dosage: 4000 IU, QW
     Route: 042
     Dates: start: 20200225

REACTIONS (3)
  - Musculoskeletal disorder [Unknown]
  - Haemarthrosis [Unknown]
  - Stress [Unknown]

NARRATIVE: CASE EVENT DATE: 202002
